FAERS Safety Report 5197535-3 (Version None)
Quarter: 2006Q4

REPORT INFORMATION
  Report Type: 
  Country: None (occurrence: None)
  Receive Date: 20061228
  Receipt Date: 20061219
  Transmission Date: 20070319
  Serious: Yes (Other)
  Sender: FDA-Public Use
  Company Number: CHNY2006BR02378

PATIENT
  Age: 58 Year
  Sex: Female
  Weight: 62 kg

DRUGS (1)
  1. TRIMEDAL (NCH)(VITAMIN C, TROXERUTIN, ACETAMINOPHEN (PARACETAMOL), PHE [Suspect]
     Indication: INFLUENZA
     Dosage: 1 DF, Q12H, ORAL
     Route: 048
     Dates: start: 20060805

REACTIONS (4)
  - COUGH [None]
  - SINUSITIS [None]
  - TACHYCARDIA [None]
  - TREMOR [None]
